FAERS Safety Report 4957058-0 (Version None)
Quarter: 2006Q1

REPORT INFORMATION
  Report Type: 
  Country: None (occurrence: None)
  Receive Date: 20060329
  Receipt Date: 20040924
  Transmission Date: 20060701
  Serious: Yes (Hospitalization)
  Sender: FDA-Public Use
  Company Number: FR-ABBOTT-04P-056-0274756-00

PATIENT
  Sex: Male
  Weight: 73 kg

DRUGS (6)
  1. HUMIRA [Suspect]
     Indication: RHEUMATOID ARTHRITIS
     Dosage: 40 MG
     Route: 058
     Dates: start: 20040407, end: 20040831
  2. HUMIRA [Suspect]
     Dates: start: 20041214, end: 20051004
  3. CELECOXIB [Concomitant]
     Indication: RHEUMATOID ARTHRITIS
     Dates: start: 20020922, end: 20040903
  4. LEFLUNOMIDE [Concomitant]
     Indication: RHEUMATOID ARTHRITIS
     Dates: start: 20011122
  5. MODUCREN [Concomitant]
     Indication: HYPERTENSION
  6. COMMERCIAL HUMIRA [Concomitant]
     Indication: RHEUMATOID ARTHRITIS
     Dosage: 40 MG
     Route: 058
     Dates: start: 20031008, end: 20040831

REACTIONS (2)
  - PULMONARY EMBOLISM [None]
  - THROMBOCYTOPENIA [None]
